FAERS Safety Report 5062707-5 (Version None)
Quarter: 2006Q3

REPORT INFORMATION
  Report Type: 
  Country: None (occurrence: None)
  Receive Date: 20060725
  Receipt Date: 20060725
  Transmission Date: 20061208
  Serious: Yes (Disabling)
  Sender: FDA-Public Use
  Company Number: None

PATIENT
  Age: 57 Year
  Sex: Female
  Weight: 62.1428 kg

DRUGS (1)
  1. LEVAQUIN [Suspect]
     Indication: ACUTE SINUSITIS
     Dosage: 500 MG  ONCE DAILY
     Dates: start: 20060614, end: 20060704

REACTIONS (5)
  - ARTHRITIS [None]
  - MOBILITY DECREASED [None]
  - MULTIPLE SCLEROSIS [None]
  - RHEUMATOID ARTHRITIS [None]
  - TENDON DISORDER [None]
